FAERS Safety Report 8278358-5 (Version None)
Quarter: 2012Q2

REPORT INFORMATION
  Report Type: 
  Country: None (occurrence: None)
  Receive Date: 20120412
  Receipt Date: 20110829
  Transmission Date: 20120825
  Serious: No
  Sender: FDA-Public Use
  Company Number: US-ASTRAZENECA-2011SE38855

PATIENT
  Sex: Male

DRUGS (4)
  1. PRILOSEC [Suspect]
     Route: 048
  2. DEXILANT [Concomitant]
  3. NEXIUM [Suspect]
     Indication: GASTROOESOPHAGEAL REFLUX DISEASE
     Route: 048
  4. PRILOSEC [Suspect]
     Indication: GASTROOESOPHAGEAL REFLUX DISEASE
     Route: 048

REACTIONS (10)
  - DRUG DOSE OMISSION [None]
  - NECK INJURY [None]
  - DIZZINESS [None]
  - HYPOAESTHESIA [None]
  - ABDOMINAL DISTENSION [None]
  - DRUG INEFFECTIVE [None]
  - DYSPNOEA [None]
  - DYSPNOEA PAROXYSMAL NOCTURNAL [None]
  - JOINT INJURY [None]
  - SOMNOLENCE [None]
